FAERS Safety Report 5794413-3 (Version None)
Quarter: 2008Q2

REPORT INFORMATION
  Report Type: 
  Country: None (occurrence: None)
  Receive Date: 20080620
  Receipt Date: 20080606
  Transmission Date: 20081010
  Serious: Yes (Hospitalization)
  Sender: FDA-Public Use
  Company Number: A08-035

PATIENT
  Age: 36 Year
  Sex: Female
  Weight: 99.7913 kg

DRUGS (3)
  1. SOUTHERN GRASS MIX [Suspect]
     Dosage: SUB CU EVERY 2 WEEKS
  2. 11 TREE MIX [Suspect]
     Dosage: SUB CU EVERY 2 WEEKS
  3. MOLD MIX ALLERGENIC EXTRACT [Concomitant]

REACTIONS (2)
  - COUGH [None]
  - THROAT TIGHTNESS [None]
